FAERS Safety Report 9725662 (Version 1)
Quarter: 2013Q4

REPORT INFORMATION
  Report Type: Spontaneous
  Country: US (occurrence: None)
  Receive Date: 20131127
  Receipt Date: 20131127
  Transmission Date: 20140711
  Serious: Yes (Other)
  Sender: FDA-Public Use
  Company Number: BTG00095

PATIENT
  Age: 15 Year
  Sex: Female

DRUGS (1)
  1. VORAXAZE [Suspect]
     Indication: OVERDOSE
     Dosage: 50 IU/KG, SINGLE, INTRAVENOUS
     Route: 042

REACTIONS (1)
  - Osteosarcoma recurrent [None]
